FAERS Safety Report 14354056 (Version 1)
Quarter: 2018Q1

REPORT INFORMATION
  Report Type: Spontaneous
  Country: US (occurrence: US)
  Receive Date: 20180105
  Receipt Date: 20180105
  Transmission Date: 20180509
  Serious: Yes (Life-Threatening, Hospitalization, Other)
  Sender: FDA-Public Use
  Company Number: US-ZYDUS-018657

PATIENT
  Age: 8 Day
  Sex: Female
  Weight: 2.8 kg

DRUGS (7)
  1. DEXMEDETOMIDINE/DEXMEDETOMIDINE HYDROCHLORIDE [Concomitant]
     Indication: SEDATION
     Route: 042
  2. AMIODARONE [Suspect]
     Active Substance: AMIODARONE
     Indication: JUNCTIONAL ECTOPIC TACHYCARDIA
     Dosage: BOLUS
     Route: 040
  3. LYPRESSIN [Concomitant]
     Active Substance: LYPRESSIN
     Indication: JUNCTIONAL ECTOPIC TACHYCARDIA
     Dosage: 0.0006 U/KG
     Route: 042
  4. DEXMEDETOMIDINE/DEXMEDETOMIDINE HYDROCHLORIDE [Suspect]
     Active Substance: DEXMEDETOMIDINE HYDROCHLORIDE
     Indication: SEDATION
     Route: 042
  5. LYPRESSIN [Concomitant]
     Active Substance: LYPRESSIN
     Indication: JUNCTIONAL ECTOPIC TACHYCARDIA
     Dosage: 0.0003 U/KG
     Route: 042
  6. EPINEPHRINE. [Concomitant]
     Active Substance: EPINEPHRINE
     Indication: JUNCTIONAL ECTOPIC TACHYCARDIA
     Route: 042
  7. MILRINONE [Concomitant]
     Active Substance: MILRINONE
     Indication: JUNCTIONAL ECTOPIC TACHYCARDIA
     Route: 042

REACTIONS (11)
  - Right ventricular dysfunction [None]
  - Blood magnesium increased [None]
  - Cardiac arrest neonatal [Unknown]
  - Pulseless electrical activity [Unknown]
  - Neonatal respiratory failure [None]
  - Calcium ionised decreased [None]
  - Junctional ectopic tachycardia [None]
  - Blood pH increased [None]
  - Base excess increased [None]
  - Hypotension [Unknown]
  - Neonatal hypotension [None]
